FAERS Safety Report 10159593 (Version 2)
Quarter: 2014Q2

REPORT INFORMATION
  Report Type: Spontaneous
  Country: IT (occurrence: None)
  Receive Date: 20140506
  Receipt Date: 20140627
  Transmission Date: 20141212
  Serious: Yes (Hospitalization)
  Sender: FDA-Public Use
  Company Number: AUR-APL-2014-05195

PATIENT
  Age: 69 Year
  Sex: Female
  Weight: 90 kg

DRUGS (1)
  1. METFORMIN (METFORMIN) [Suspect]
     Indication: TYPE 2 DIABETES MELLITUS
     Route: 048
     Dates: start: 20090120, end: 20140120

REACTIONS (6)
  - Sopor [None]
  - Blood creatinine increased [None]
  - Drug level increased [None]
  - Lactic acidosis [None]
  - Anuria [None]
  - Metabolic acidosis [None]
